FAERS Safety Report 10800367 (Version 1)
Quarter: 2015Q1

REPORT INFORMATION
  Report Type: Spontaneous
  Country: US (occurrence: US)
  Receive Date: 20150216
  Receipt Date: 20150216
  Transmission Date: 20150721
  Serious: No
  Sender: FDA-Public Use
  Company Number: US-ALLERGAN-1412013US

PATIENT
  Age: 79 Year
  Sex: Male

DRUGS (6)
  1. B2 ASMEDIC [Concomitant]
     Indication: MIGRAINE
     Dosage: UNK UNK, TID
     Route: 048
     Dates: start: 201403
  2. RESTASIS [Suspect]
     Active Substance: CYCLOSPORINE
     Dosage: 2 GTT, BID
     Route: 047
     Dates: start: 201403, end: 201404
  3. RESTASIS [Suspect]
     Active Substance: CYCLOSPORINE
     Indication: DRY EYE
     Dosage: 2 GTT, BID
     Route: 047
     Dates: start: 201405, end: 201405
  4. CLONAZEPAM. [Concomitant]
     Active Substance: CLONAZEPAM
     Indication: SLEEP DISORDER THERAPY
     Dosage: 0.25 MG, QHS
     Route: 048
     Dates: start: 2012
  5. MAGNESIUM [Concomitant]
     Active Substance: MAGNESIUM
     Indication: MIGRAINE
     Dosage: UNK UNK, TID
     Route: 048
     Dates: start: 201403
  6. FML FORTE [Concomitant]
     Active Substance: FLUOROMETHOLONE
     Dosage: UNK
     Dates: start: 201402

REACTIONS (7)
  - Conjunctivitis [Recovering/Resolving]
  - Lacrimation increased [Recovering/Resolving]
  - Blepharitis [Recovering/Resolving]
  - Foreign body sensation in eyes [Recovering/Resolving]
  - Ocular hyperaemia [Recovering/Resolving]
  - Eye irritation [Recovering/Resolving]
  - Vision blurred [Recovering/Resolving]
